FAERS Safety Report 9372341 (Version 1)
Quarter: 2013Q2

REPORT INFORMATION
  Report Type: Report from Study
  Country: US (occurrence: US)
  Receive Date: 20130627
  Receipt Date: 20130627
  Transmission Date: 20140414
  Serious: Yes (Death)
  Sender: FDA-Public Use
  Company Number: US-MYLANLABS-2012S1021251

PATIENT
  Age: 66 Year
  Sex: Male

DRUGS (18)
  1. CLOZAPINE TABLETS [Suspect]
     Indication: SCHIZOAFFECTIVE DISORDER
     Route: 048
     Dates: start: 20110110, end: 20120816
  2. OMEPRAZOLE [Concomitant]
  3. TERAZOSIN [Concomitant]
  4. SIMVASTATIN [Concomitant]
  5. ADVAIR [Concomitant]
     Dosage: 250/50 ONE PUFF BID
  6. POTASSIUM [Concomitant]
  7. ALENDRONATE [Concomitant]
  8. VENTOLIN [Concomitant]
     Dosage: 0.083% ONE VIAL Q4HR
     Route: 055
  9. LISINOPRIL [Concomitant]
  10. FLUTICASONE [Concomitant]
     Dosage: 2 SPRAYS QD
     Route: 045
  11. BENZTROPINE [Concomitant]
  12. LOPID [Concomitant]
  13. MULTIVITAMIN [Concomitant]
  14. ROPINIROLE [Concomitant]
  15. COLACE [Concomitant]
  16. REMERON [Concomitant]
  17. TEMAZEPAM [Concomitant]
  18. FISH OIL [Concomitant]

REACTIONS (1)
  - Cardiomyopathy [Fatal]
